FAERS Safety Report 14588179 (Version 1)
Quarter: 2018Q1

REPORT INFORMATION
  Report Type: Spontaneous
  Country: US (occurrence: US)
  Receive Date: 20180301
  Receipt Date: 20180301
  Transmission Date: 20180509
  Serious: Yes (Other)
  Sender: FDA-Public Use
  Company Number: PHEH2018US007140

PATIENT
  Sex: Female

DRUGS (1)
  1. TEGRETOL [Suspect]
     Active Substance: CARBAMAZEPINE
     Indication: PRODUCT USED FOR UNKNOWN INDICATION
     Dosage: 100MG 2-3X A DAY
     Route: 065

REACTIONS (11)
  - Movement disorder [Unknown]
  - Weight decreased [Unknown]
  - Thinking abnormal [Unknown]
  - Paraesthesia [Unknown]
  - Pancreatitis [Unknown]
  - Abnormal behaviour [Unknown]
  - Mood altered [Unknown]
  - Speech disorder [Unknown]
  - Eating disorder [Unknown]
  - Hepatitis [Unknown]
  - Tremor [Unknown]
